FAERS Safety Report 8488511-3 (Version None)
Quarter: 2012Q3

REPORT INFORMATION
  Report Type: 
  Country: None (occurrence: None)
  Receive Date: 20120705
  Receipt Date: 20120629
  Transmission Date: 20120928
  Serious: Yes (Other)
  Sender: FDA-Public Use
  Company Number: US-SANOFI-AVENTIS-2012SA046789

PATIENT
  Age: 76 Year
  Sex: Female

DRUGS (6)
  1. MULTAQ [Suspect]
     Indication: ATRIAL FLUTTER
     Route: 048
     Dates: start: 20120604
  2. CALCIUM [Concomitant]
  3. IBUPROFEN [Concomitant]
  4. COENZYME Q10 [Concomitant]
  5. VITAMIN TAB [Concomitant]
  6. LOVAZA [Concomitant]

REACTIONS (4)
  - DIARRHOEA [None]
  - FATIGUE [None]
  - POST HERPETIC NEURALGIA [None]
  - ATRIAL FLUTTER [None]
